FAERS Safety Report 8419741-4 (Version None)
Quarter: 2012Q2

REPORT INFORMATION
  Report Type: 
  Country: None (occurrence: None)
  Receive Date: 20120607
  Receipt Date: 20120605
  Transmission Date: 20120825
  Serious: No
  Sender: FDA-Public Use
  Company Number: US-PFIZER INC-2012067845

PATIENT
  Sex: Female

DRUGS (2)
  1. CARBAMAZEPINE [Concomitant]
     Dosage: UNK, THREE TIMES A DAY
  2. LYRICA [Suspect]
     Indication: TRIGEMINAL NEURALGIA
     Dosage: 75 MG, 2X/DAY

REACTIONS (4)
  - SWELLING FACE [None]
  - HYPOAESTHESIA ORAL [None]
  - EYE SWELLING [None]
  - HYPOAESTHESIA [None]
